FAERS Safety Report 21297871 (Version 4)
Quarter: 2025Q2

REPORT INFORMATION
  Report Type: Spontaneous
  Country: US (occurrence: US)
  Receive Date: 20220906
  Receipt Date: 20250422
  Transmission Date: 20250716
  Serious: Yes (Other)
  Sender: PFIZER
  Company Number: US-PFIZER INC-202201104565

PATIENT
  Age: 70 Year
  Sex: Male
  Weight: 93.44 kg

DRUGS (7)
  1. VYNDAMAX [Suspect]
     Active Substance: TAFAMIDIS
     Indication: Cardiac amyloidosis
     Dosage: 61 MG, 1X/DAY
     Dates: start: 2021
  2. VYNDAMAX [Suspect]
     Active Substance: TAFAMIDIS
     Dosage: TOOK THE FIRST ONE AT 10:30 AND A SECOND ONE AT 4:30
     Dates: start: 20220829, end: 20220829
  3. VYNDAMAX [Suspect]
     Active Substance: TAFAMIDIS
     Dosage: 61 MG, DAILY
     Route: 048
     Dates: end: 20250409
  4. ALFUZOSIN [Concomitant]
     Active Substance: ALFUZOSIN
  5. METOPROLOL [Concomitant]
     Active Substance: METOPROLOL
  6. METHOTREXATE [Concomitant]
     Active Substance: METHOTREXATE
  7. ELIQUIS [Concomitant]
     Active Substance: APIXABAN

REACTIONS (3)
  - Spinal operation [Recovered/Resolved]
  - Accidental overdose [Unknown]
  - Intentional product misuse [Unknown]

NARRATIVE: CASE EVENT DATE: 20220829
